FAERS Safety Report 24659805 (Version 7)
Quarter: 2025Q1

REPORT INFORMATION
  Report Type: Spontaneous
  Country: AT (occurrence: AT)
  Receive Date: 20241125
  Receipt Date: 20250121
  Transmission Date: 20250408
  Serious: Yes (Death, Hospitalization)
  Sender: TEVA
  Company Number: AT-TEVA-VS-3267514

PATIENT
  Age: 75 Year
  Sex: Male

DRUGS (14)
  1. METHOTREXATE [Suspect]
     Active Substance: METHOTREXATE
     Indication: Encephalomyelitis
     Route: 065
  2. ISOFLURANE [Suspect]
     Active Substance: ISOFLURANE
     Indication: Sedation
     Route: 055
  3. BACLOFEN [Concomitant]
     Active Substance: BACLOFEN
     Indication: Encephalomyelitis
     Route: 037
  4. DIAZEPAM [Suspect]
     Active Substance: DIAZEPAM
     Indication: Sedation
     Route: 065
  5. DEXMEDETOMIDINE [Suspect]
     Active Substance: DEXMEDETOMIDINE
     Indication: Sedation
     Route: 065
  6. SUFENTANIL [Suspect]
     Active Substance: SUFENTANIL
     Indication: Sedation
     Route: 042
  7. VELCADE [Suspect]
     Active Substance: BORTEZOMIB
     Indication: Encephalomyelitis
     Route: 065
  8. PROPOFOL [Suspect]
     Active Substance: PROPOFOL
     Indication: Sedation
     Route: 065
  9. TRYPTOPHAN [Concomitant]
     Active Substance: TRYPTOPHAN
     Indication: Immunoadsorption therapy
     Route: 065
  10. TIAPRIDE [Concomitant]
     Active Substance: TIAPRIDE
     Indication: Encephalomyelitis
     Route: 065
  11. DRONABINOL [Concomitant]
     Active Substance: DRONABINOL
     Indication: Encephalomyelitis
     Route: 065
  12. HUMAN IMMUNOGLOBULIN G [Suspect]
     Active Substance: HUMAN IMMUNOGLOBULIN G
     Indication: Immune-mediated neurological disorder
     Route: 042
  13. CYCLOPHOSPHAMIDE [Suspect]
     Active Substance: CYCLOPHOSPHAMIDE
     Indication: Encephalomyelitis
     Route: 065
  14. METHYLPREDNISOLONE [Suspect]
     Active Substance: METHYLPREDNISOLONE
     Indication: Encephalomyelitis
     Route: 065

REACTIONS (4)
  - Rebound effect [Fatal]
  - Autonomic nervous system imbalance [Fatal]
  - Drug ineffective [Fatal]
  - Agitation [Fatal]
